FAERS Safety Report 12894200 (Version 4)
Quarter: 2018Q1

REPORT INFORMATION
  Report Type: Spontaneous
  Country: US (occurrence: US)
  Receive Date: 20161028
  Receipt Date: 20180126
  Transmission Date: 20180508
  Serious: Yes (Hospitalization, Other)
  Sender: FDA-Public Use
  Company Number: US-SAOL THERAPEUTICS-2016SAO00904

PATIENT
  Age: 55 Year
  Sex: Male
  Weight: 51.7 kg

DRUGS (33)
  1. BACLOFEN. [Suspect]
     Active Substance: BACLOFEN
     Indication: MUSCLE SPASTICITY
     Dosage: 1079.2 ?G, /DAY
     Route: 037
  2. SALINE NASAL SPRAY [Concomitant]
     Active Substance: SODIUM CHLORIDE
  3. ACETAMINOPHEN. [Concomitant]
     Active Substance: ACETAMINOPHEN
     Dosage: 1 CAPSULES, AS NEEDED 4X/DAY
  4. SENNA [Concomitant]
     Active Substance: SENNA LEAF\SENNOSIDES\SENNOSIDES A AND B
     Dosage: 1 TABLETS, UNK
  5. TUMS [Concomitant]
     Active Substance: CALCIUM CARBONATE
     Dosage: 1 TABLETS, AS DIRECTED
  6. PROCHLORPERAZINE MALEATE. [Concomitant]
     Active Substance: PROCHLORPERAZINE MALEATE
     Dosage: 1 TABLETS, 3X/DAY
  7. MELOXICAM. [Concomitant]
     Active Substance: MELOXICAM
     Dosage: 1 TABLETS, 1X/DAY
  8. LISINOPRIL. [Concomitant]
     Active Substance: LISINOPRIL
     Dosage: 1 TABLETS, 1X/DAY
  9. DULCOLAX NOS [Concomitant]
     Active Substance: BISACODYL OR DOCUSATE SODIUM
     Dosage: UNK
     Route: 054
  10. NATURAL BALANCE TEARS [Concomitant]
     Active Substance: HYPROMELLOSE 2910 (3 MPA.S)
     Dosage: 1 DROP, INTO AFFECTED EYE AS NEEDED
     Route: 047
  11. PERIDEX [Concomitant]
     Active Substance: CHLORHEXIDINE GLUCONATE
     Dosage: UNK, 1X/DAY
  12. NITROFURANTOIN. [Concomitant]
     Active Substance: NITROFURANTOIN
     Dosage: 1 CAPSULES, 4X/DAY WITH FOOD OR MILK
  13. ENEMA BOTTLE [Concomitant]
     Dosage: 1 DOSAGE UNITS, AS NEEDED
  14. ICY HOT PAIN RELIEVING [Concomitant]
  15. LIDOCAINE HCL [Concomitant]
     Active Substance: LIDOCAINE HYDROCHLORIDE
  16. MILK OF MAGNESIA CONCENTRATE [Concomitant]
  17. TRILEPTAL [Concomitant]
     Active Substance: OXCARBAZEPINE
     Dosage: 600 MG, 2X/DAY
  18. VITAMIN D [Concomitant]
     Active Substance: CHOLECALCIFEROL
     Dosage: 1 CAPSULES, 1X/DAY
  19. IBUPROFEN. [Concomitant]
     Active Substance: IBUPROFEN
     Dosage: 1 TABLETS, 3X/DAY
  20. MORPHINE [Suspect]
     Active Substance: MORPHINE
     Dosage: 0.809 MG, \DAY
     Route: 037
  21. KETOROLAC TROMETHAMINE. [Concomitant]
     Active Substance: KETOROLAC TROMETHAMINE
     Dosage: 1 TABLETS, AS DIRECTED 3X/DAY AS NEEDED MAX OF 3 PER DAY FOR MAX OF 5 IN A ROW
  22. MIRALAX [Concomitant]
     Active Substance: POLYETHYLENE GLYCOL 3350
     Dosage: UNK, 1X/DAY
  23. OMEPRAZOLE CR [Concomitant]
     Active Substance: OMEPRAZOLE
     Dosage: 20 MG, 1X/DAY
  24. UNSPECIFIED SUNSCREEN SPF30 [Concomitant]
  25. MORPHINE [Suspect]
     Active Substance: MORPHINE
     Dosage: .757 MG, \DAY
     Route: 037
     Dates: start: 20171018
  26. SENNA LEAVES [Concomitant]
     Active Substance: SENNOSIDES A AND B
  27. PERCOCET [Concomitant]
     Active Substance: ACETAMINOPHEN\OXYCODONE HYDROCHLORIDE
     Dosage: 1 TABLETS, 4X/DAY
  28. COLACE [Concomitant]
     Active Substance: DOCUSATE SODIUM
     Dosage: UNK CAPSULES, 2X/DAY
  29. ROPINIROLE HCL [Concomitant]
     Active Substance: ROPINIROLE HYDROCHLORIDE
     Dosage: 1 TABLETS, 3X/DAY
  30. VALIUM [Concomitant]
     Active Substance: DIAZEPAM
     Dosage: 1 TABLETS, 1X/DAY AT NIGHT
  31. VICKS VAPORUB [Concomitant]
     Active Substance: CAMPHOR (SYNTHETIC)\EUCALYPTUS OIL\MENTHOL
  32. OXYBUTYNIN. [Concomitant]
     Active Substance: OXYBUTYNIN CHLORIDE
     Dosage: 5 MG, AS NEEDED
  33. BACLOFEN. [Suspect]
     Active Substance: BACLOFEN
     Dosage: 1010.2 ?G, \DAY
     Route: 037
     Dates: start: 20171018

REACTIONS (10)
  - Urinary tract infection [Recovered/Resolved]
  - Sepsis [Recovered/Resolved]
  - Asthenia [Not Recovered/Not Resolved]
  - Pneumonia [Not Recovered/Not Resolved]
  - Overdose [Recovered/Resolved]
  - Pain [Unknown]
  - Muscle spasticity [Unknown]
  - Weight decreased [Not Recovered/Not Resolved]
  - Somnolence [Recovered/Resolved]
  - Bacteraemia [Recovered/Resolved]

NARRATIVE: CASE EVENT DATE: 201712
